FAERS Safety Report 10497431 (Version 4)
Quarter: 2016Q1

REPORT INFORMATION
  Report Type: Report from Study
  Country: NL (occurrence: NL)
  Receive Date: 20141006
  Receipt Date: 20160225
  Transmission Date: 20160525
  Serious: No
  Sender: FDA-Public Use
  Company Number: NL-JNJFOC-20140109796

PATIENT
  Age: 61 Year
  Sex: Female
  Weight: 80 kg

DRUGS (2)
  1. STELARA [Suspect]
     Active Substance: USTEKINUMAB
     Indication: PSORIASIS
     Route: 058
     Dates: start: 20090209
  2. ACITRETIN. [Concomitant]
     Active Substance: ACITRETIN
     Route: 065

REACTIONS (2)
  - Upper respiratory tract infection [Unknown]
  - Latent tuberculosis [Unknown]

NARRATIVE: CASE EVENT DATE: 20130626
